FAERS Safety Report 24373359 (Version 2)
Quarter: 2025Q3

REPORT INFORMATION
  Report Type: Report from Study
  Country: EU (occurrence: EU)
  Receive Date: 20240927
  Receipt Date: 20250711
  Transmission Date: 20251021
  Serious: Yes (Death, Other)
  Sender: ABBVIE
  Company Number: EU-ABBVIE-19K-056-2938236-00

PATIENT
  Age: 88 Year
  Sex: Male
  Weight: 53 kg

DRUGS (13)
  1. VENETOCLAX [Suspect]
     Active Substance: VENETOCLAX
     Indication: Chronic lymphocytic leukaemia
     Route: 048
     Dates: start: 20190717, end: 20190718
  2. VENETOCLAX [Suspect]
     Active Substance: VENETOCLAX
     Indication: Chronic lymphocytic leukaemia
     Route: 048
     Dates: start: 20190719, end: 20190723
  3. VENETOCLAX [Suspect]
     Active Substance: VENETOCLAX
     Indication: Chronic lymphocytic leukaemia
     Route: 048
     Dates: start: 20190724, end: 20190730
  4. VENETOCLAX [Suspect]
     Active Substance: VENETOCLAX
     Indication: Chronic lymphocytic leukaemia
     Route: 048
     Dates: start: 20190731, end: 20190805
  5. VENETOCLAX [Suspect]
     Active Substance: VENETOCLAX
     Indication: Chronic lymphocytic leukaemia
     Route: 048
     Dates: start: 20190806, end: 20190812
  6. VENETOCLAX [Suspect]
     Active Substance: VENETOCLAX
     Indication: Chronic lymphocytic leukaemia
     Route: 048
     Dates: start: 20190813, end: 20190820
  7. VENETOCLAX [Suspect]
     Active Substance: VENETOCLAX
     Indication: Chronic lymphocytic leukaemia
     Route: 048
     Dates: start: 20190821, end: 20190927
  8. VENETOCLAX [Suspect]
     Active Substance: VENETOCLAX
     Indication: Chronic lymphocytic leukaemia
     Route: 048
     Dates: start: 20191003, end: 2020
  9. CORDARONE [Concomitant]
     Active Substance: AMIODARONE HYDROCHLORIDE
     Indication: Arrhythmia
     Dates: start: 2016
  10. FUROSEMIDE [Concomitant]
     Active Substance: FUROSEMIDE
     Indication: Hyperuricaemia
     Dates: start: 20190716, end: 20190718
  11. VALACYCLOVIR HYDROCHLORIDE [Concomitant]
     Active Substance: VALACYCLOVIR HYDROCHLORIDE
     Indication: Infection prophylaxis
     Dates: start: 201907, end: 2020
  12. ELIQUIS [Concomitant]
     Active Substance: APIXABAN
     Indication: Arrhythmia
     Dates: start: 2017
  13. ALLOPURINOL [Concomitant]
     Active Substance: ALLOPURINOL
     Indication: Hyperuricaemia
     Dates: start: 20190716, end: 201908

REACTIONS (13)
  - Lung disorder [Fatal]
  - Rhinovirus infection [Recovered/Resolved]
  - Cough [Not Recovered/Not Resolved]
  - Neutropenia [Recovered/Resolved]
  - Deafness [Not Recovered/Not Resolved]
  - Bronchitis [Recovered/Resolved]
  - Rhinitis [Recovered/Resolved]
  - Intervertebral disc protrusion [Recovered/Resolved]
  - Urinary incontinence [Not Recovered/Not Resolved]
  - Hypogammaglobulinaemia [Not Recovered/Not Resolved]
  - Cataract [Recovered/Resolved]
  - Night sweats [Recovered/Resolved]
  - Cataract [Recovered/Resolved]

NARRATIVE: CASE EVENT DATE: 20190718
